FAERS Safety Report 22379961 (Version 1)
Quarter: 2023Q2

REPORT INFORMATION
  Report Type: Report from Study
  Country: DE (occurrence: DE)
  Receive Date: 20230529
  Receipt Date: 20230529
  Transmission Date: 20230721
  Serious: Yes (Life-Threatening, Hospitalization)
  Sender: FDA-Public Use
  Company Number: None

PATIENT
  Age: 83 Year
  Sex: Male
  Weight: 70 kg

DRUGS (34)
  1. FENTANYL [Suspect]
     Active Substance: FENTANYL
     Indication: Anaesthesia
     Dosage: 1 DOSAGE FORMS DAILY; 1 DF, QD,  FENTANYL INJECTABLE
     Route: 065
     Dates: start: 19980226, end: 19980226
  2. ASPIRIN [Suspect]
     Active Substance: ASPIRIN
     Indication: Thrombosis prophylaxis
     Dosage: 100 MILLIGRAM DAILY; 100,QD
     Route: 065
     Dates: end: 19980223
  3. BACTRIM [Suspect]
     Active Substance: SULFAMETHOXAZOLE\TRIMETHOPRIM
     Indication: Infection prophylaxis
     Dates: start: 19980226, end: 19980226
  4. BACTRIM [Suspect]
     Active Substance: SULFAMETHOXAZOLE\TRIMETHOPRIM
     Indication: Infection prophylaxis
     Dates: start: 19980226, end: 19980226
  5. CIPROFLOXACIN [Suspect]
     Active Substance: CIPROFLOXACIN
     Indication: Infection prophylaxis
     Dosage: 400,ONCE/SINGLE
     Dates: start: 19980226, end: 19980226
  6. ADALAT [Suspect]
     Active Substance: NIFEDIPINE
     Indication: Hypertension
     Dosage: ADALAT 10
     Dates: start: 19980226, end: 19980226
  7. NOVALGIN (METAMIZOLE SODIUM) [Suspect]
     Active Substance: METAMIZOLE SODIUM
     Indication: Pain
     Dates: start: 19980226, end: 19980226
  8. HYDROCHLOROTHIAZIDE\VALSARTAN [Suspect]
     Active Substance: HYDROCHLOROTHIAZIDE\VALSARTAN
     Indication: Hypertension
  9. HYDROCHLOROTHIAZIDE\VALSARTAN [Suspect]
     Active Substance: HYDROCHLOROTHIAZIDE\VALSARTAN
     Indication: Hypertension
  10. LORMETAZEPAM [Suspect]
     Active Substance: LORMETAZEPAM
     Indication: Sleep disorder
     Dates: end: 19980223
  11. DALTEPARIN SODIUM [Suspect]
     Active Substance: DALTEPARIN SODIUM
     Indication: Thrombosis prophylaxis
     Dosage: 1 DOSAGE FORMS DAILY; 1 DF, QD
     Dates: start: 19980225
  12. TRAMADOL [Suspect]
     Active Substance: TRAMADOL
     Indication: Pain
     Dosage: 100 MILLIGRAM DAILY; 100MG,QD
     Dates: start: 19980209, end: 19980223
  13. GLYBURIDE [Suspect]
     Active Substance: GLYBURIDE
     Indication: Diabetes mellitus
  14. FLAVOXATE HYDROCHLORIDE [Concomitant]
     Active Substance: FLAVOXATE HYDROCHLORIDE
     Indication: Prostatic operation
     Dates: end: 19980223
  15. UNSPECIFIED INGREDIENT [Concomitant]
     Active Substance: UNSPECIFIED INGREDIENT
     Indication: Electrolyte imbalance
     Dates: start: 19980226, end: 19980226
  16. UNSPECIFIED INGREDIENT [Concomitant]
     Active Substance: UNSPECIFIED INGREDIENT
     Indication: Electrolyte imbalance
     Dates: start: 19980226, end: 19980226
  17. UNSPECIFIED INGREDIENT [Concomitant]
     Active Substance: UNSPECIFIED INGREDIENT
     Indication: Electrolyte imbalance
     Dates: start: 19980226, end: 19980226
  18. UNSPECIFIED INGREDIENT [Concomitant]
     Active Substance: UNSPECIFIED INGREDIENT
     Indication: Electrolyte imbalance
     Dates: start: 19980226, end: 19980226
  19. UNSPECIFIED INGREDIENT [Concomitant]
     Active Substance: UNSPECIFIED INGREDIENT
     Indication: Electrolyte imbalance
     Dates: start: 19980226, end: 19980226
  20. UNSPECIFIED INGREDIENT [Concomitant]
     Active Substance: UNSPECIFIED INGREDIENT
     Indication: Electrolyte imbalance
     Dates: start: 19980226, end: 19980226
  21. UNSPECIFIED INGREDIENT [Concomitant]
     Active Substance: UNSPECIFIED INGREDIENT
     Indication: Electrolyte imbalance
     Dates: start: 19980226, end: 19980226
  22. UNSPECIFIED INGREDIENT [Concomitant]
     Active Substance: UNSPECIFIED INGREDIENT
     Indication: Electrolyte imbalance
     Dates: start: 19980226, end: 19980226
  23. GINKGO [Concomitant]
     Active Substance: GINKGO
     Indication: Cardiovascular disorder
     Dates: end: 19980223
  24. AGIOLAX [Concomitant]
     Indication: Constipation
     Dates: end: 19980223
  25. AGIOLAX [Concomitant]
     Indication: Constipation
     Dates: end: 19980223
  26. DEXAMETHASONE [Concomitant]
     Active Substance: DEXAMETHASONE
     Indication: Cataract operation
     Dosage: ROA-OPTHALMIC USE
  27. PSYCHOTONIN-SED [Concomitant]
     Indication: Agitation
     Dates: end: 19980223
  28. PSYCHOTONIN-SED [Concomitant]
     Indication: Agitation
     Dates: end: 19980223
  29. GINKGO [Concomitant]
     Active Substance: GINKGO
     Indication: Cardiovascular disorder
     Dates: start: 19980224
  30. NOVODIGAL [Concomitant]
     Indication: Hypertension
  31. VITAMIN C [Concomitant]
     Active Substance: ASCORBIC ACID
     Indication: Vitamin supplementation
     Dates: end: 19980223
  32. NORVASC [Concomitant]
     Active Substance: AMLODIPINE BESYLATE
     Indication: Hypertension
  33. OMEPRAZOLE [Concomitant]
     Active Substance: OMEPRAZOLE
     Indication: Prophylaxis
     Dates: end: 19980223
  34. MATRICARIA RECUTITA [Concomitant]
     Active Substance: MATRICARIA RECUTITA
     Indication: Constipation
     Dosage: PHARMACEUTICAL DOSE FORM ADMIN TEXT :099
     Dates: end: 19980223

REACTIONS (10)
  - Skin lesion [Recovering/Resolving]
  - Cheilitis [Recovered/Resolved]
  - Toxic epidermal necrolysis [Recovering/Resolving]
  - Erythema [Recovered/Resolved]
  - Mucosal inflammation [Recovered/Resolved]
  - Pruritus [Recovered/Resolved]
  - Ocular hyperaemia [Recovering/Resolving]
  - Pyrexia [Recovered/Resolved]
  - Urinary hesitation [Recovered/Resolved]
  - Lip erosion [Recovering/Resolving]

NARRATIVE: CASE EVENT DATE: 19980227
